FAERS Safety Report 21263442 (Version 2)
Quarter: 2023Q2

REPORT INFORMATION
  Report Type: Spontaneous
  Country: CA (occurrence: CA)
  Receive Date: 20220829
  Receipt Date: 20230504
  Transmission Date: 20230721
  Serious: Yes (Death, Disabling, Other)
  Sender: FDA-Public Use
  Company Number: CA-ORGANON-O2205CAN000131

PATIENT
  Age: 35 Year
  Sex: Male

DRUGS (2)
  1. PROPECIA [Suspect]
     Active Substance: FINASTERIDE
     Indication: Alopecia
     Dosage: 1 MILLIGRAM
     Route: 048
     Dates: start: 20200909
  2. PROPECIA [Suspect]
     Active Substance: FINASTERIDE
     Indication: Product used for unknown indication
     Dosage: 0.5 MILLIGRAM
     Route: 048
     Dates: start: 202011

REACTIONS (39)
  - Suicidal ideation [Fatal]
  - Arrhythmia [Fatal]
  - Alopecia [Fatal]
  - Brain fog [Fatal]
  - Weight increased [Fatal]
  - Panic attack [Fatal]
  - Depressed mood [Fatal]
  - Insomnia [Fatal]
  - Tinnitus [Fatal]
  - Hyperhidrosis [Fatal]
  - Anxiety [Fatal]
  - Sarcopenia [Fatal]
  - Asthenia [Fatal]
  - Anhedonia [Fatal]
  - Blunted affect [Fatal]
  - Loss of libido [Fatal]
  - Disturbance in attention [Fatal]
  - Dry skin [Fatal]
  - Dry eye [Fatal]
  - Muscle twitching [Fatal]
  - Hypoaesthesia [Fatal]
  - Body temperature decreased [Fatal]
  - Head discomfort [Fatal]
  - Arthralgia [Fatal]
  - Muscle atrophy [Fatal]
  - Muscular weakness [Fatal]
  - Akathisia [Fatal]
  - Electric shock sensation [Fatal]
  - Arthralgia [Fatal]
  - Back pain [Fatal]
  - Jaw clicking [Fatal]
  - Spinal pain [Fatal]
  - Nausea [Fatal]
  - Irritability [Fatal]
  - Completed suicide [Fatal]
  - Post 5-alpha-reductase inhibitor syndrome [Fatal]
  - Drug ineffective [Fatal]
  - Liver disorder [Fatal]
  - Feeling abnormal [Fatal]

NARRATIVE: CASE EVENT DATE: 20201001
